FAERS Safety Report 9540134 (Version 1)
Quarter: 2013Q2

REPORT INFORMATION
  Report Type: Spontaneous
  Country: US (occurrence: None)
  Receive Date: 20130503
  Receipt Date: 20130503
  Transmission Date: 20140414
  Serious: No
  Sender: FDA-Public Use
  Company Number: 1000041896

PATIENT
  Age: 69 Year
  Sex: Male

DRUGS (15)
  1. DALIRESP (ROFLUMILAST) (500 MICROGRAM, TABLETS) [Suspect]
     Indication: CHRONIC OBSTRUCTIVE PULMONARY DISEASE
     Route: 048
     Dates: start: 20130101, end: 20130119
  2. LOSARTAN(LOSARTAN)(LOSARTAN) [Concomitant]
  3. CITALOPRAM(CITALOPRAM HYDROBROMIDE)(CITALOPRAM HYDROBROMIDE) [Concomitant]
  4. ALPHAGAN P(BRIMONIDINE TARTRATE) (BRIMONIDINE TARTRATE) [Concomitant]
  5. NIASPAN(NICOTINIC ACID)(NICOTINIC ACID) [Concomitant]
  6. ASPIRIN(ACETYLSALICYLIC ACID)(ACETYLSALICYLIC ACID) [Concomitant]
  7. SPIRIVA(TIOTROPIUM BROMIDE)(TIOTROPIUM BROMIDE) [Concomitant]
  8. TERAZOSIN(TERAZOSIN)(TERAZOSIN) [Concomitant]
  9. LIPITOR(ATORVASTATIN CALCIUM) (ATORVASTATIN CALCIUM) [Concomitant]
  10. RHINOCORT (BUDESONIDE) (BUDESONIDE) [Concomitant]
  11. ASMANEX [Concomitant]
  12. VENTOLIN(ALBUTEROL)(ALBUTEROL) [Concomitant]
  13. LEVOTHYROXINE(LEVOTHYROXINE SODIUM) (LEVOTHYROXINE SODIUM) [Concomitant]
  14. TRAVATAN Z(TRAVOPROST)(TRAVOPROST) [Concomitant]
  15. SINGULAR (MONTELUKAST SODIUM) (MONTELUKAST SODIUM) [Concomitant]

REACTIONS (3)
  - Rash [None]
  - Erythema [None]
  - Pruritus [None]
